FAERS Safety Report 13627343 (Version 1)
Quarter: 2017Q2

REPORT INFORMATION
  Report Type: Spontaneous
  Country: TR (occurrence: TR)
  Receive Date: 20170607
  Receipt Date: 20170607
  Transmission Date: 20170830
  Serious: Yes (Other)
  Sender: FDA-Public Use
  Company Number: TR-SA-2017SA101713

PATIENT
  Age: 16 Year
  Sex: Female

DRUGS (3)
  1. ACTRAPID [Concomitant]
     Active Substance: INSULIN HUMAN
     Route: 065
  2. SOLOSTAR [Concomitant]
     Active Substance: DEVICE
  3. LANTUS SOLOSTAR [Suspect]
     Active Substance: INSULIN GLARGINE
     Dosage: DOSE:60 UNIT(S)
     Route: 058

REACTIONS (3)
  - Sacroiliitis [Not Recovered/Not Resolved]
  - Drug resistance [Not Recovered/Not Resolved]
  - Anti-insulin receptor antibody positive [Not Recovered/Not Resolved]

NARRATIVE: CASE EVENT DATE: 20120601
